FAERS Safety Report 20568385 (Version 10)
Quarter: 2023Q1

REPORT INFORMATION
  Report Type: Spontaneous
  Country: US (occurrence: US)
  Receive Date: 20220308
  Receipt Date: 20230214
  Transmission Date: 20230418
  Serious: Yes (Hospitalization, Other)
  Sender: FDA-Public Use
  Company Number: US-EXELIXIS-CABO-22049527

PATIENT
  Age: 72 Year
  Sex: Male
  Weight: 109 kg

DRUGS (5)
  1. OPDIVO [Suspect]
     Active Substance: NIVOLUMAB
     Indication: Product used for unknown indication
     Dosage: UNK
  2. CABOMETYX [Suspect]
     Active Substance: CABOZANTINIB S-MALATE
     Indication: Renal cancer
     Dosage: 40 MG, QD
     Route: 048
     Dates: start: 20220210, end: 202203
  3. CABOMETYX [Suspect]
     Active Substance: CABOZANTINIB S-MALATE
     Dosage: 40 MG, QD
     Route: 048
  4. CABOMETYX [Suspect]
     Active Substance: CABOZANTINIB S-MALATE
     Dosage: 20 MG, QD
     Route: 048
  5. CABOMETYX [Suspect]
     Active Substance: CABOZANTINIB S-MALATE
     Dosage: 20 MG EVERY OTHER DAY
     Route: 048

REACTIONS (14)
  - Pneumothorax [Unknown]
  - Increased appetite [Unknown]
  - Sensitive skin [Unknown]
  - Tanning [Unknown]
  - Photosensitivity reaction [Unknown]
  - Neuropathy peripheral [Unknown]
  - Dry skin [Unknown]
  - Constipation [Unknown]
  - Fatigue [Unknown]
  - Diarrhoea [Recovering/Resolving]
  - Blood pressure increased [Unknown]
  - Inappropriate schedule of product administration [Unknown]
  - Abdominal discomfort [Unknown]
  - Pulmonary mass [Recovering/Resolving]

NARRATIVE: CASE EVENT DATE: 20220921
